FAERS Safety Report 5488110-1 (Version None)
Quarter: 2007Q4

REPORT INFORMATION
  Report Type: 
  Country: None (occurrence: None)
  Receive Date: 20071002
  Receipt Date: 20070228
  Transmission Date: 20080405
  Serious: Yes (Hospitalization, Other)
  Sender: FDA-Public Use
  Company Number: WAES 0703USA00019

PATIENT
  Age: 6 Month
  Sex: Male
  Weight: 8.6183 kg

DRUGS (2)
  1. SINGULAIR [Suspect]
     Indication: RHINITIS ALLERGIC
     Dosage: 4 MG DAILY PO
     Route: 048
     Dates: start: 20061229, end: 20070115
  2. SINGULAIR [Suspect]
     Indication: RHINITIS ALLERGIC
     Dosage: 4 MG DAILY PO
     Route: 048
     Dates: start: 20070119, end: 20070131

REACTIONS (1)
  - CONVULSION [None]
